FAERS Safety Report 6723457-X (Version None)
Quarter: 2010Q2

REPORT INFORMATION
  Report Type: 
  Country: None (occurrence: None)
  Receive Date: 20100511
  Receipt Date: 20100428
  Transmission Date: 20101027
  Serious: Yes (Hospitalization)
  Sender: FDA-Public Use
  Company Number: 1000013703

PATIENT
  Age: 52 Year
  Sex: Female

DRUGS (5)
  1. ESCITALOPRAM [Suspect]
     Dosage: 5 MG (5 MG, 1 IN 1 D), ORAL
     Route: 048
     Dates: start: 20091001, end: 20100330
  2. ZOLPIDEM [Suspect]
     Dosage: 10 MG (10 MG, 1 IN 1 D), ORAL
     Dates: start: 20091001, end: 20100330
  3. . [Concomitant]
  4. ZITHROMAX [Concomitant]
  5. LEVOTHYROS (TABLETS) [Concomitant]

REACTIONS (4)
  - DEVICE INTOLERANCE [None]
  - DRUG INEFFECTIVE [None]
  - LICHENOID KERATOSIS [None]
  - TOXIC SKIN ERUPTION [None]
